FAERS Safety Report 6328138-2 (Version None)
Quarter: 2009Q3

REPORT INFORMATION
  Report Type: 
  Country: None (occurrence: None)
  Receive Date: 20090825
  Receipt Date: 20081211
  Transmission Date: 20100115
  Serious: No
  Sender: FDA-Public Use
  Company Number: US-ABBOTT-08P-163-0492412-00

PATIENT
  Sex: Female
  Weight: 67.192 kg

DRUGS (1)
  1. SYNTHROID [Suspect]
     Indication: HYPOTHYROIDISM
     Dates: start: 20050101

REACTIONS (6)
  - BLOOD THYROID STIMULATING HORMONE DECREASED [None]
  - IMPATIENCE [None]
  - INSOMNIA [None]
  - IRRITABILITY [None]
  - THYROXINE FREE DECREASED [None]
  - WEIGHT INCREASED [None]
